FAERS Safety Report 18243246 (Version 1)
Quarter: 2020Q3

REPORT INFORMATION
  Report Type: Spontaneous
  Country: US (occurrence: US)
  Receive Date: 20200908
  Receipt Date: 20200908
  Transmission Date: 20201103
  Serious: Yes (Hospitalization, Other)
  Sender: FDA-Public Use
  Company Number: US-TERSERA THERAPEUTICS LLC-2019TRS000008

PATIENT

DRUGS (14)
  1. PRIALT [Suspect]
     Active Substance: ZICONOTIDE ACETATE
     Indication: POST LAMINECTOMY SYNDROME
     Dosage: 3 MCG, QD (25 MCG/ML, 17ML TOTAL VOLUME)
     Route: 037
     Dates: start: 20180930
  2. GABAPENTIN. [Concomitant]
     Active Substance: GABAPENTIN
     Indication: PRODUCT USED FOR UNKNOWN INDICATION
     Dosage: 300 MG AT BED TIME
     Route: 048
  3. PRIALT [Suspect]
     Active Substance: ZICONOTIDE ACETATE
     Indication: INTERVERTEBRAL DISC DEGENERATION
     Dosage: UNKNOWN (INJECTION)
     Route: 065
     Dates: start: 2018
  4. MULTIVITAMINS [VITAMINS NOS] [Concomitant]
     Active Substance: VITAMINS
     Indication: PRODUCT USED FOR UNKNOWN INDICATION
     Dosage: UNK, QD
     Route: 048
  5. PRIALT [Suspect]
     Active Substance: ZICONOTIDE ACETATE
     Indication: SPINAL PAIN
     Dosage: UNKNOWN (INJECTION)
     Route: 065
     Dates: start: 20180403
  6. ALPRAZOLAM. [Concomitant]
     Active Substance: ALPRAZOLAM
     Indication: PRODUCT USED FOR UNKNOWN INDICATION
     Dosage: 0.5 MG, QD
     Route: 048
  7. SERTRALINE [Concomitant]
     Active Substance: SERTRALINE HYDROCHLORIDE
     Indication: DEPRESSION
     Dosage: 100 MG, BED TIME
     Route: 048
  8. LISINOPRIL AND HYDROCHLOROTHIAZIDE [Concomitant]
     Active Substance: HYDROCHLOROTHIAZIDE\LISINOPRIL
     Indication: ESSENTIAL HYPERTENSION
     Dosage: 10 MG/12.5 MG
     Route: 048
  9. VITAMIN D3 [Concomitant]
     Active Substance: CHOLECALCIFEROL
     Indication: PRODUCT USED FOR UNKNOWN INDICATION
     Dosage: 50000 IU, EVERY THURSDAY EVENING
     Route: 048
  10. PRIALT [Suspect]
     Active Substance: ZICONOTIDE ACETATE
     Dosage: 0.15 MCG, QD (ESSENTIALLY OFF)
     Route: 037
     Dates: start: 20181214, end: 201901
  11. VALIUM [Concomitant]
     Active Substance: DIAZEPAM
     Indication: MUSCLE SPASMS
     Dosage: 10 MG, PRN
     Route: 048
  12. CARVEDILOL. [Concomitant]
     Active Substance: CARVEDILOL
     Indication: ESSENTIAL HYPERTENSION
     Dosage: 25 MG, QD
     Route: 048
  13. CLONAZEPAM. [Concomitant]
     Active Substance: CLONAZEPAM
     Indication: ANXIETY
     Dosage: 1 MG, BED TIME (2)
     Route: 048
  14. ASPIRIN [ACETYLSALICYLIC ACID] [Concomitant]
     Active Substance: ASPIRIN
     Indication: PRODUCT USED FOR UNKNOWN INDICATION
     Dosage: 81 MG, QD
     Route: 048

REACTIONS (24)
  - Cystitis bacterial [Recovered/Resolved]
  - Acute respiratory failure [Recovered/Resolved]
  - Urinary retention [Recovered/Resolved]
  - Pleural effusion [Recovered/Resolved]
  - Haematuria [Unknown]
  - Hypokalaemia [Unknown]
  - Metabolic encephalopathy [Recovered/Resolved]
  - Atrial fibrillation [Unknown]
  - Delusion [Recovered/Resolved]
  - Paraspinal abscess [Unknown]
  - Blood alkaline phosphatase increased [Unknown]
  - Anxiety [Unknown]
  - Hyperkalaemia [Unknown]
  - Cerebrospinal fluid leakage [Recovered/Resolved]
  - Atelectasis [Unknown]
  - Off label use [Unknown]
  - Hallucinations, mixed [Recovered/Resolved]
  - Device leakage [Unknown]
  - Leukocytosis [Unknown]
  - Urinary tract infection fungal [Unknown]
  - Nephrocalcinosis [Unknown]
  - Muscular weakness [Unknown]
  - Psychotic disorder [Recovered/Resolved]
  - Sepsis [Unknown]

NARRATIVE: CASE EVENT DATE: 201804
